FAERS Safety Report 22654223 (Version 1)
Quarter: 2023Q2

REPORT INFORMATION
  Report Type: Report from Study
  Country: US (occurrence: US)
  Receive Date: 20230629
  Receipt Date: 20230629
  Transmission Date: 20230722
  Serious: Yes (Other)
  Sender: FDA-Public Use
  Company Number: US-002147023-NVSC2023US147443

PATIENT
  Age: 20 Year
  Sex: Female

DRUGS (2)
  1. ENOXAPARIN [Suspect]
     Active Substance: ENOXAPARIN
     Indication: Product used for unknown indication
     Dosage: UNK, BID
     Route: 065
  2. ENOXAPARIN [Suspect]
     Active Substance: ENOXAPARIN
     Dosage: 100 MG, BID
     Route: 065

REACTIONS (7)
  - Deep vein thrombosis [Unknown]
  - Antiphospholipid syndrome [Unknown]
  - Blood immunoglobulin G increased [Unknown]
  - Limb discomfort [Unknown]
  - Activated partial thromboplastin time prolonged [Unknown]
  - Peripheral swelling [Unknown]
  - Therapeutic response decreased [Unknown]
